FAERS Safety Report 17110716 (Version 2)
Quarter: 2019Q4

REPORT INFORMATION
  Report Type: Spontaneous
  Country: US (occurrence: US)
  Receive Date: 20191204
  Receipt Date: 20191209
  Transmission Date: 20200122
  Serious: No
  Sender: FDA-Public Use
  Company Number: US-PFIZER INC-2019524236

PATIENT
  Age: 77 Year
  Sex: Male

DRUGS (2)
  1. GABAPENTIN. [Suspect]
     Active Substance: GABAPENTIN
     Dosage: 1200 MG, DAILY (TWO 300MG GABAPENTIN IN THE MORNING AND TWO 300MG GABAPENTIN AT NIGHT)
  2. TYLENOL 8HR [Concomitant]
     Active Substance: ACETAMINOPHEN
     Dosage: UNK (TWO 8-HOUR TYLENOL IN THE MORNING AND TWO 8-HOUR TYLENOL AT NIGHT)

REACTIONS (3)
  - Balance disorder [Unknown]
  - Nervousness [Unknown]
  - Drug ineffective [Unknown]
